FAERS Safety Report 4709082-0 (Version None)
Quarter: 2005Q3

REPORT INFORMATION
  Report Type: 
  Country: None (occurrence: None)
  Receive Date: 20050707
  Receipt Date: 20050707
  Transmission Date: 20060218
  Serious: Yes (Death)
  Sender: FDA-Public Use
  Company Number: None

PATIENT
  Sex: Male

DRUGS (10)
  1. IRESSA [Suspect]
     Indication: ADENOCARCINOMA PANCREAS
     Dosage: 250 MG DAILY ORAL
     Route: 048
     Dates: start: 20031024, end: 20050125
  2. PACLITAXEL [Suspect]
     Indication: ADENOCARCINOMA PANCREAS
     Dosage: 71MG WEEKLY INTRAVENOUS
     Route: 042
     Dates: start: 20031103, end: 20031208
  3. RADIATION THERAPY [Concomitant]
  4. LASIX [Concomitant]
  5. SPIRONOLACTONE [Concomitant]
  6. OXYCONTIN [Concomitant]
  7. . [Concomitant]
  8. SCOPALOMINE PATCH [Concomitant]
  9. GUAIFENESIN [Concomitant]
  10. ALBUMIN (HUMAN) [Concomitant]

REACTIONS (1)
  - MALIGNANT NEOPLASM PROGRESSION [None]
